FAERS Safety Report 22940790 (Version 4)
Quarter: 2024Q2

REPORT INFORMATION
  Report Type: Spontaneous
  Country: US (occurrence: US)
  Receive Date: 20230913
  Receipt Date: 20240523
  Transmission Date: 20240716
  Serious: No
  Sender: FDA-Public Use
  Company Number: US-INCYTE CORPORATION-2023IN009421

PATIENT

DRUGS (1)
  1. JAKAFI [Suspect]
     Active Substance: RUXOLITINIB
     Indication: Myelofibrosis
     Dosage: 10 MILLIGRAM, BID
     Route: 048
     Dates: start: 20230818

REACTIONS (6)
  - Rash [Unknown]
  - Fatigue [Unknown]
  - Product dose omission issue [Unknown]
  - Weight increased [Unknown]
  - Dizziness [Unknown]
  - Headache [Unknown]
